FAERS Safety Report 20592971 (Version 2)
Quarter: 2022Q2

REPORT INFORMATION
  Report Type: Report from Study
  Country: US (occurrence: US)
  Receive Date: 20220315
  Receipt Date: 20220504
  Transmission Date: 20220721
  Serious: Yes (Other)
  Sender: FDA-Public Use
  Company Number: US-ABBVIE-21K-163-4006465-00

PATIENT
  Sex: Male

DRUGS (6)
  1. HUMIRA [Suspect]
     Active Substance: ADALIMUMAB
     Indication: Crohn^s disease
     Dosage: CITRATE FREE
     Route: 058
  2. HUMIRA [Suspect]
     Active Substance: ADALIMUMAB
     Dosage: CITRATE FREE
     Route: 058
     Dates: start: 2020
  3. HUMIRA [Suspect]
     Active Substance: ADALIMUMAB
     Dosage: CITRATE FREE
     Route: 058
  4. PFIZER-BIONTECH COVID-19 VACCINE [Suspect]
     Active Substance: TOZINAMERAN
     Indication: COVID-19 immunisation
     Dosage: FIRST DOSE
     Route: 030
     Dates: start: 20210122, end: 20210122
  5. PFIZER-BIONTECH COVID-19 VACCINE [Suspect]
     Active Substance: TOZINAMERAN
     Dosage: SECOND DOSE
     Route: 030
     Dates: start: 20210212, end: 20210212
  6. PFIZER-BIONTECH COVID-19 VACCINE [Suspect]
     Active Substance: TOZINAMERAN
     Dosage: BOOSTER DOSE/THIRD DOSE
     Route: 030
     Dates: start: 20210830, end: 20210830

REACTIONS (17)
  - Intestinal stenosis [Unknown]
  - Gastrointestinal tract irritation [Unknown]
  - Gastrointestinal mucosa hyperaemia [Not Recovered/Not Resolved]
  - Stomatitis [Not Recovered/Not Resolved]
  - Vaccination site pain [Recovered/Resolved]
  - Vaccination site reaction [Recovered/Resolved]
  - Drug level decreased [Unknown]
  - Acne [Unknown]
  - Fistula [Unknown]
  - Haemoglobin decreased [Unknown]
  - Iron deficiency anaemia [Not Recovered/Not Resolved]
  - Malaise [Unknown]
  - Joint stiffness [Unknown]
  - Drug specific antibody present [Unknown]
  - Pain [Unknown]
  - Pyrexia [Unknown]
  - Glucose tolerance impaired [Unknown]

NARRATIVE: CASE EVENT DATE: 20200101
